FAERS Safety Report 7028914-7 (Version None)
Quarter: 2010Q3

REPORT INFORMATION
  Report Type: 
  Country: None (occurrence: None)
  Receive Date: 20100920
  Receipt Date: 20100914
  Transmission Date: 20110219
  Serious: Yes (Hospitalization)
  Sender: FDA-Public Use
  Company Number: WSDF_00675

PATIENT
  Sex: Male
  Weight: 100 kg

DRUGS (3)
  1. WINRHO SDF LIQUID [Suspect]
     Indication: IDIOPATHIC THROMBOCYTOPENIC PURPURA
     Dosage: (75 ?G/KG TOTAL INTRAVENOUS), (INTRAVENOUS)
     Route: 042
     Dates: start: 20070914, end: 20070914
  2. WINRHO SDF LIQUID [Suspect]
  3. WINRHO SDF LIQUID [Suspect]

REACTIONS (28)
  - ASPARTATE AMINOTRANSFERASE INCREASED [None]
  - ASTHENIA [None]
  - BLOOD ALBUMIN DECREASED [None]
  - BLOOD CALCIUM DECREASED [None]
  - BLOOD GLUCOSE INCREASED [None]
  - BLOOD SODIUM DECREASED [None]
  - BLOOD SODIUM INCREASED [None]
  - BLOOD THYROID STIMULATING HORMONE DECREASED [None]
  - BRADYCARDIA [None]
  - CONDITION AGGRAVATED [None]
  - ELECTROCARDIOGRAM ST-T CHANGE [None]
  - EPSTEIN-BARR VIRUS TEST POSITIVE [None]
  - FLUID OVERLOAD [None]
  - HAEMOLYTIC ANAEMIA [None]
  - HYPOTHYROIDISM [None]
  - LYMPHOCYTE PERCENTAGE DECREASED [None]
  - MALARIA [None]
  - NAUSEA [None]
  - NEUTROPHIL PERCENTAGE INCREASED [None]
  - PANCYTOPENIA [None]
  - RENAL FAILURE ACUTE [None]
  - SINUS ARRHYTHMIA [None]
  - SLEEP APNOEA SYNDROME [None]
  - STRESS [None]
  - TACHYCARDIA [None]
  - THROMBOCYTOPENIA [None]
  - TRI-IODOTHYRONINE DECREASED [None]
  - WHITE BLOOD CELL COUNT INCREASED [None]
